FAERS Safety Report 19756235 (Version 3)
Quarter: 2022Q2

REPORT INFORMATION
  Report Type: Report from Study
  Country: US (occurrence: US)
  Receive Date: 20210827
  Receipt Date: 20220614
  Transmission Date: 20220721
  Serious: No
  Sender: FDA-Public Use
  Company Number: US-AMGEN-USASP2021132264

PATIENT
  Age: 65 Year
  Sex: Female

DRUGS (16)
  1. LUMAKRAS [Suspect]
     Active Substance: SOTORASIB
     Indication: Lung neoplasm malignant
     Dosage: 960 MILLIGRAM, QD
     Route: 048
     Dates: start: 202106
  2. CYANOCOBALAMIN [Concomitant]
     Active Substance: CYANOCOBALAMIN
  3. PREDNISONE [Concomitant]
     Active Substance: PREDNISONE
  4. HYDROCORTISONE [Concomitant]
     Active Substance: HYDROCORTISONE
  5. NEURONTIN [Concomitant]
     Active Substance: GABAPENTIN
  6. TYLENOL [Concomitant]
     Active Substance: ACETAMINOPHEN
  7. PRILOSEC [Concomitant]
     Active Substance: OMEPRAZOLE MAGNESIUM
  8. ZOFRAN [Concomitant]
     Active Substance: ONDANSETRON HYDROCHLORIDE
  9. PEPCID [Concomitant]
     Active Substance: FAMOTIDINE
  10. MOMETASONE FUROATE [Concomitant]
     Active Substance: MOMETASONE FUROATE
  11. DECADRON [Concomitant]
     Active Substance: DEXAMETHASONE
  12. MAXITROL [Concomitant]
     Active Substance: DEXAMETHASONE\NEOMYCIN SULFATE\POLYMYXIN B SULFATE
  13. ALPRAZOLAM [Concomitant]
     Active Substance: ALPRAZOLAM
  14. ALBUTEROL SULFATE [Concomitant]
     Active Substance: ALBUTEROL SULFATE
  15. LEVOTHYROXINE SODIUM [Concomitant]
     Active Substance: LEVOTHYROXINE SODIUM
  16. FOLVITE [FOLIC ACID] [Concomitant]

REACTIONS (2)
  - Eye operation [Unknown]
  - Diarrhoea [Recovered/Resolved]

NARRATIVE: CASE EVENT DATE: 20210101
